FAERS Safety Report 9879597 (Version 2)
Quarter: 2014Q2

REPORT INFORMATION
  Report Type: Spontaneous
  Country: US (occurrence: US)
  Receive Date: 20140206
  Receipt Date: 20140418
  Transmission Date: 20141212
  Serious: Yes (Hospitalization, Other)
  Sender: FDA-Public Use
  Company Number: US-RB-063096-14

PATIENT
  Age: 0 Year
  Sex: Female

DRUGS (5)
  1. SUBOXONE TABLET [Suspect]
     Indication: PRODUCT USED FOR UNKNOWN INDICATION
     Route: 064
     Dates: start: 200906, end: 200912
  2. SUBOXONE TABLET [Suspect]
     Indication: DRUG DEPENDENCE
     Dosage: PATERNAL DOSING DETAILS UNKNOWN
     Route: 064
     Dates: start: 200904, end: 20100114
  3. PRENATAL VITAMINS [Concomitant]
     Indication: VITAMIN SUPPLEMENTATION
     Dosage: MOTHER TAKES 1 TABLET DAILY
     Route: 064
     Dates: start: 200906, end: 20100114
  4. IRON SUPPLEMENT [Concomitant]
     Indication: ANAEMIA OF PREGNANCY
     Dosage: MOTHER TOOK 1 TABLET DAILY
     Route: 064
     Dates: start: 200906, end: 20100114
  5. NICOTINE [Concomitant]
     Indication: PRODUCT USED FOR UNKNOWN INDICATION
     Dosage: MOTHER SMOKES 10 CIGARETTES DAILY
     Route: 064
     Dates: start: 200904, end: 20100114

REACTIONS (3)
  - Foetal exposure during pregnancy [Recovered/Resolved]
  - Drug withdrawal syndrome neonatal [Recovered/Resolved]
  - Neonatal respiratory depression [Recovered/Resolved]
